FAERS Safety Report 25144170 (Version 2)
Quarter: 2025Q2

REPORT INFORMATION
  Report Type: Report from Study
  Country: US (occurrence: US)
  Receive Date: 20250401
  Receipt Date: 20250520
  Transmission Date: 20250716
  Serious: Yes (Hospitalization)
  Sender: TAKEDA
  Company Number: US-TAKEDA-US201901052

PATIENT
  Age: 71 Year
  Sex: Female

DRUGS (8)
  1. LANADELUMAB [Suspect]
     Active Substance: LANADELUMAB
     Indication: Immune system disorder
     Dosage: 300 MILLIGRAM, Q2WEEKS
     Dates: start: 20181217
  2. LANADELUMAB [Suspect]
     Active Substance: LANADELUMAB
     Dosage: 300 MILLIGRAM, Q2WEEKS
     Dates: start: 20181227
  3. LANADELUMAB [Suspect]
     Active Substance: LANADELUMAB
     Dosage: UNK, Q2WEEKS
     Dates: start: 201812
  4. HAEGARDA [Concomitant]
     Active Substance: HUMAN C1-ESTERASE INHIBITOR
     Indication: Product used for unknown indication
  5. STERILE WATER [Concomitant]
     Active Substance: WATER
     Indication: Product used for unknown indication
  6. EPINEPHRINE [Concomitant]
     Active Substance: EPINEPHRINE
     Indication: Product used for unknown indication
  7. SODIUM CHLORIDE [Concomitant]
     Active Substance: SODIUM CHLORIDE
     Indication: Product used for unknown indication
  8. RUCONEST [Concomitant]
     Active Substance: CONESTAT ALFA
     Indication: Product used for unknown indication

REACTIONS (7)
  - Chest pain [Unknown]
  - Nausea [Not Recovered/Not Resolved]
  - Headache [Not Recovered/Not Resolved]
  - Diarrhoea [Recovered/Resolved]
  - Rhinorrhoea [Unknown]
  - Lacrimation increased [Unknown]
  - Weight increased [Unknown]

NARRATIVE: CASE EVENT DATE: 20181227
